FAERS Safety Report 14447251 (Version 3)
Quarter: 2018Q1

REPORT INFORMATION
  Report Type: Spontaneous
  Country: US (occurrence: US)
  Receive Date: 20180126
  Receipt Date: 20180301
  Transmission Date: 20180509
  Serious: Yes (Life-Threatening, Hospitalization, Other)
  Sender: FDA-Public Use
  Company Number: US-PFIZER INC-2018034921

PATIENT
  Age: 53 Year
  Sex: Male

DRUGS (4)
  1. IFOSFAMIDE. [Suspect]
     Active Substance: IFOSFAMIDE
     Indication: DIFFUSE LARGE B-CELL LYMPHOMA
     Dosage: UNK UNK, CYCLIC (CYCLE 1)
  2. CARBOPLATIN. [Suspect]
     Active Substance: CARBOPLATIN
     Indication: DIFFUSE LARGE B-CELL LYMPHOMA
     Dosage: UNK UNK, CYCLIC (CYCLE 1)
  3. RITUXIMAB. [Suspect]
     Active Substance: RITUXIMAB
     Indication: DIFFUSE LARGE B-CELL LYMPHOMA
     Dosage: UNK UNK, CYCLIC (CYCLE 1)
  4. ETOPOSIDE. [Suspect]
     Active Substance: ETOPOSIDE
     Indication: DIFFUSE LARGE B-CELL LYMPHOMA
     Dosage: UNK UNK, CYCLIC (CYCLE 1)

REACTIONS (6)
  - Distributive shock [Unknown]
  - Skin lesion [Unknown]
  - Mental status changes [Unknown]
  - Respiratory failure [Unknown]
  - Phaehyphomycosis [Recovering/Resolving]
  - Alternaria infection [Recovering/Resolving]
